FAERS Safety Report 23460659 (Version 2)
Quarter: 2025Q2

REPORT INFORMATION
  Report Type: Spontaneous
  Country: DE (occurrence: DE)
  Receive Date: 20240131
  Receipt Date: 20250520
  Transmission Date: 20250717
  Serious: Yes (Other)
  Sender: AUROBINDO
  Company Number: DE-SA-2024SA014222

PATIENT
  Age: 62 Year
  Sex: Female

DRUGS (2)
  1. LEFLUNOMIDE [Suspect]
     Active Substance: LEFLUNOMIDE
     Indication: Rheumatoid arthritis
     Dosage: 100 MILLIGRAM, ONCE A DAY
     Route: 065
  2. LEFLUNOMIDE [Suspect]
     Active Substance: LEFLUNOMIDE
     Route: 065

REACTIONS (19)
  - Eczema [Recovered/Resolved]
  - Lymphocytic infiltration [Recovered/Resolved]
  - Oral mucosa erosion [Recovered/Resolved]
  - Scab [Recovered/Resolved]
  - Epidermal necrosis [Recovered/Resolved]
  - Asthenia [Recovered/Resolved]
  - Rash [Recovered/Resolved]
  - Dyspnoea [Recovered/Resolved]
  - Pyrexia [Recovered/Resolved]
  - Chills [Recovered/Resolved]
  - Digital pulpitis [Recovered/Resolved]
  - Oedema peripheral [Recovered/Resolved]
  - Lip erosion [Recovered/Resolved]
  - Erythema multiforme [Recovered/Resolved]
  - Blister [Recovered/Resolved]
  - Leukocytosis [Recovered/Resolved]
  - Erythema [Recovered/Resolved]
  - Epidermolysis [Recovered/Resolved]
  - Rash erythematous [Recovered/Resolved]
